FAERS Safety Report 6555208-6 (Version None)
Quarter: 2010Q1

REPORT INFORMATION
  Report Type: 
  Country: None (occurrence: None)
  Receive Date: 20100126
  Receipt Date: 20100111
  Transmission Date: 20100710
  Serious: Yes (Hospitalization, Other)
  Sender: FDA-Public Use
  Company Number: 2009FI0045

PATIENT
  Age: 1 Year
  Sex: Female
  Weight: 12 kg

DRUGS (1)
  1. ORFADIN [Suspect]
     Indication: TYROSINAEMIA
     Dosage: 1.6 MG/KG(20 MG, 1 IN 1 D), ORAL
     Route: 048
     Dates: start: 20071015

REACTIONS (5)
  - ALPHA 1 FOETOPROTEIN INCREASED [None]
  - HEPATIC CIRRHOSIS [None]
  - LIVER TRANSPLANT [None]
  - TRANSPLANT REJECTION [None]
  - VIRAL INFECTION [None]
